FAERS Safety Report 5381379-3 (Version None)
Quarter: 2007Q2

REPORT INFORMATION
  Report Type: 
  Country: None (occurrence: None)
  Receive Date: 20070629
  Receipt Date: 20060526
  Transmission Date: 20071010
  Serious: Yes (Hospitalization, Other)
  Sender: FDA-Public Use
  Company Number: 2006070180

PATIENT
  Age: 44 Year
  Sex: Male
  Weight: 97.5234 kg

DRUGS (9)
  1. ZOLOFT [Suspect]
     Indication: POST-TRAUMATIC STRESS DISORDER
     Dosage: 300 MG (300 MG,1 IN 1 D)
     Dates: start: 20051001
  2. WELLBUTRIN [Suspect]
     Indication: ILL-DEFINED DISORDER
     Dates: end: 20051201
  3. CLONIDINE [Concomitant]
  4. ENALAPRIL (ENALAPRIL) [Concomitant]
  5. KLONOPIN [Concomitant]
  6. FLEXERIL [Concomitant]
  7. MUSCLE RELAXANTS (MUSCLE RELAXANTS) [Concomitant]
  8. FIORICET [Concomitant]
  9. SOMA [Concomitant]

REACTIONS (4)
  - AMNESIA [None]
  - AMPHETAMINES POSITIVE [None]
  - CONVULSION [None]
  - SWELLING [None]
